FAERS Safety Report 5897975-0 (Version None)
Quarter: 2008Q3

REPORT INFORMATION
  Report Type: 
  Country: None (occurrence: None)
  Receive Date: 20080925
  Receipt Date: 20080922
  Transmission Date: 20090109
  Serious: Yes (Other)
  Sender: FDA-Public Use
  Company Number: B0538392A

PATIENT
  Age: 52 Year
  Sex: Male

DRUGS (1)
  1. NOVOCEF [Suspect]
     Indication: URINARY TRACT DISORDER
     Dosage: 500MG TWICE PER DAY
     Route: 048
     Dates: start: 20080512, end: 20080515

REACTIONS (2)
  - BODY TEMPERATURE INCREASED [None]
  - PURPURA [None]
